FAERS Safety Report 5157362-X (Version None)
Quarter: 2006Q4

REPORT INFORMATION
  Report Type: 
  Country: None (occurrence: None)
  Receive Date: 20061127
  Receipt Date: 20061117
  Transmission Date: 20070319
  Serious: Yes (Other)
  Sender: FDA-Public Use
  Company Number: GR-AVENTIS-200621830GDDC

PATIENT
  Age: 81 Year
  Sex: Male

DRUGS (12)
  1. ARAVA [Suspect]
     Indication: RHEUMATOID ARTHRITIS
     Route: 048
     Dates: start: 20040201, end: 20060801
  2. HUMIRA [Suspect]
     Indication: RHEUMATOID ARTHRITIS
     Route: 058
     Dates: start: 20040201, end: 20060801
  3. CATAPRESAN                         /00171101/ [Concomitant]
     Route: 048
  4. COZAAR [Concomitant]
     Route: 048
  5. LASIX [Concomitant]
     Route: 048
  6. ANGORON [Concomitant]
     Route: 048
  7. SINTROM [Concomitant]
     Route: 048
  8. PREZOLON [Concomitant]
     Route: 048
  9. MEGA-CALCIUM [Concomitant]
     Dosage: DOSE: UNK
     Route: 048
  10. ONE-ALPHA [Concomitant]
     Route: 048
  11. TRINIPATCH [Concomitant]
  12. SPIRIVA [Concomitant]

REACTIONS (2)
  - HODGKIN'S DISEASE [None]
  - LYMPHADENOPATHY [None]
